FAERS Safety Report 5616681-0 (Version None)
Quarter: 2008Q1

REPORT INFORMATION
  Report Type: 
  Country: None (occurrence: None)
  Receive Date: 20080207
  Receipt Date: 20080129
  Transmission Date: 20080703
  Serious: Yes (Hospitalization)
  Sender: FDA-Public Use
  Company Number: PHHO2008FR01801

PATIENT
  Age: 38 Year
  Sex: Male

DRUGS (1)
  1. CGP 57148B [Suspect]
     Indication: GASTROINTESTINAL STROMAL TUMOUR
     Dosage: 400 MG, QD
     Route: 048
     Dates: start: 20060629

REACTIONS (2)
  - CHEST PAIN [None]
  - HYPERTRIGLYCERIDAEMIA [None]
